FAERS Safety Report 9162466 (Version 1)
Quarter: 2013Q1

REPORT INFORMATION
  Report Type: Spontaneous
  Country: GB (occurrence: None)
  Receive Date: 20130215
  Receipt Date: 20130215
  Transmission Date: 20140127
  Serious: Yes (Hospitalization)
  Sender: FDA-Public Use
  Company Number: 1595765

PATIENT
  Age: 62 Year
  Sex: Female

DRUGS (5)
  1. DOCETAXEL [Suspect]
     Indication: BREAST CANCER
     Dosage: 130 MG MILLIGRAM (S) (1 WEEK)
     Route: 042
     Dates: start: 20120504
  2. TRASTUZUMAB [Concomitant]
  3. MONOCLONAL ANTIBODIES [Concomitant]
  4. LANSOPRAZOLE [Concomitant]
  5. FIGRASTIM [Concomitant]

REACTIONS (3)
  - Diarrhoea [None]
  - Dehydration [None]
  - Oral candidiasis [None]
